FAERS Safety Report 20291671 (Version 1)
Quarter: 2022Q1

REPORT INFORMATION
  Report Type: Spontaneous
  Country: US (occurrence: None)
  Receive Date: 20220104
  Receipt Date: 20220104
  Transmission Date: 20220423
  Serious: Yes (Other)
  Sender: FDA-Public Use
  Company Number: None

PATIENT
  Age: 29 Year
  Sex: Male

DRUGS (1)
  1. CASIRIVIMAB\IMDEVIMAB [Suspect]
     Active Substance: CASIRIVIMAB\IMDEVIMAB
     Dates: start: 20211218, end: 20211218

REACTIONS (7)
  - Flushing [None]
  - Visual impairment [None]
  - Hypotension [None]
  - Anxiety [None]
  - Presyncope [None]
  - Tachypnoea [None]
  - Feeling abnormal [None]

NARRATIVE: CASE EVENT DATE: 20211218
